FAERS Safety Report 9119979 (Version 1)
Quarter: 2013Q1

REPORT INFORMATION
  Report Type: Spontaneous
  Country: DE (occurrence: None)
  Receive Date: 20130130
  Receipt Date: 20130130
  Transmission Date: 20140127
  Serious: Yes (Other)
  Sender: FDA-Public Use
  Company Number: DE-1196267

PATIENT
  Age: 61 Year
  Sex: Male
  Weight: 149 kg

DRUGS (7)
  1. AZOPT 1 % OPHTHALMIC SUSPENSION (AZOPT 1%) [Suspect]
     Indication: GLAUCOMA
     Dosage: (1 %  BID  OU  OPHTHALMIC)?(08/??2012  TO NOT CONTINUING)
     Route: 047
     Dates: start: 201208
  2. XALATAN (XALATAN) (PHARMACIA AG) [Suspect]
     Indication: GLAUCOMA
     Dosage: (1 DF  QD)?(  TO CONTINUING)
  3. GLUCOPHAGE [Concomitant]
  4. ASS [Concomitant]
  5. BLOPRESS [Concomitant]
  6. L-THYROXIN LA PHARMA [Concomitant]
  7. ZYLORIC [Concomitant]

REACTIONS (10)
  - Respiratory disorder [None]
  - Bronchial obstruction [None]
  - Rash pustular [None]
  - Mucosal dryness [None]
  - Stomatitis [None]
  - Throat irritation [None]
  - Eczema [None]
  - Nasal dryness [None]
  - Dry throat [None]
  - Dry mouth [None]
